FAERS Safety Report 24887378 (Version 1)
Quarter: 2025Q1

REPORT INFORMATION
  Report Type: Spontaneous
  Country: US (occurrence: US)
  Receive Date: 20250127
  Receipt Date: 20250127
  Transmission Date: 20250409
  Serious: Yes (Other)
  Sender: SANOFI AVENTIS
  Company Number: US-SA-2025SA022197

PATIENT
  Age: 75 Year
  Sex: Male
  Weight: 76.65 kg

DRUGS (1)
  1. DUPIXENT [Suspect]
     Active Substance: DUPILUMAB
     Indication: Illness
     Dosage: 300 MG, QOW
     Route: 065
     Dates: start: 20210526

REACTIONS (3)
  - Pneumonia [Unknown]
  - Hernia [Unknown]
  - COVID-19 [Unknown]

NARRATIVE: CASE EVENT DATE: 20250101
